FAERS Safety Report 21915040 (Version 1)
Quarter: 2023Q1

REPORT INFORMATION
  Report Type: Spontaneous
  Country: US (occurrence: US)
  Receive Date: 20230126
  Receipt Date: 20230126
  Transmission Date: 20230418
  Serious: No
  Sender: FDA-Public Use
  Company Number: US-CATALYST PHARMACEUTICALS, INC-2022CAT00714

PATIENT
  Age: 58 Year
  Sex: Female
  Weight: 68.027 kg

DRUGS (13)
  1. FIRDAPSE [Suspect]
     Active Substance: AMIFAMPRIDINE PHOSPHATE
     Indication: Myasthenic syndrome
     Dosage: 1.5 TABLETS (15 MG), 4X/DAY
     Route: 048
  2. AMPYRA [Concomitant]
     Active Substance: DALFAMPRIDINE
     Dosage: 10 MG, 1X/DAY
  3. AZATHIOPRINE [Concomitant]
     Active Substance: AZATHIOPRINE
     Dosage: 50 MG, 1X/DAY
  4. PROBIOTIC GUMMY [Concomitant]
     Dosage: 2 GUMMIES, 1X/DAY
  5. DULOXETINE [Concomitant]
     Active Substance: DULOXETINE
     Dosage: 20 MG, 1X/DAY
  6. DULOXETINE [Concomitant]
     Active Substance: DULOXETINE
     Dosage: 30 MG, 1X/DAY
  7. HYDROXYCHLOROQUINE [Concomitant]
     Active Substance: HYDROXYCHLOROQUINE
     Dosage: 300 MG, 1X/DAY
  8. PYRIDOSTIGMINE BROMIDE [Concomitant]
     Active Substance: PYRIDOSTIGMINE BROMIDE
     Dosage: 180 MG, 1X/DAY
  9. PYRIDOSTIGMINE [Concomitant]
     Active Substance: PYRIDOSTIGMINE
     Dosage: 30 MG, 1X/DAY IN THE MORNING
  10. SUCRAID [Concomitant]
     Active Substance: SACROSIDASE
     Dosage: 6 ML, 1X/DAY
  11. TRAMADOL [Concomitant]
     Active Substance: TRAMADOL
     Dosage: 50 MG, AS NEEDED
  12. TYLENOL [Concomitant]
     Active Substance: ACETAMINOPHEN
     Dosage: 1300 MG, 2X/DAY
  13. ZEGERID [Concomitant]
     Active Substance: OMEPRAZOLE\SODIUM BICARBONATE
     Dosage: 20/1100 MG, 1X/DAY

REACTIONS (2)
  - Hypoaesthesia [Not Recovered/Not Resolved]
  - Paraesthesia [Not Recovered/Not Resolved]

NARRATIVE: CASE EVENT DATE: 20220801
